FAERS Safety Report 9613099 (Version 1)
Quarter: 2013Q4

REPORT INFORMATION
  Report Type: Spontaneous
  Country: US (occurrence: None)
  Receive Date: 20131008
  Receipt Date: 20131008
  Transmission Date: 20140711
  Serious: No
  Sender: FDA-Public Use
  Company Number: DKLU1085977

PATIENT
  Age: 43 Year
  Sex: Female

DRUGS (1)
  1. PANHEMATIN [Suspect]
     Indication: PORPHYRIA
     Dosage: 1 IN 1 M, CENTRAL LINE
     Dates: start: 201207

REACTIONS (3)
  - Pyrexia [None]
  - Fatigue [None]
  - Pain [None]
